FAERS Safety Report 11092419 (Version 1)
Quarter: 2015Q2

REPORT INFORMATION
  Report Type: Spontaneous
  Country: US (occurrence: None)
  Receive Date: 20150505
  Receipt Date: 20150505
  Transmission Date: 20150821
  Serious: No
  Sender: FDA-Public Use
  Company Number: None

PATIENT
  Age: 71 Year
  Sex: Male
  Weight: 80.74 kg

DRUGS (8)
  1. MESALAMINE. [Suspect]
     Active Substance: MESALAMINE
     Indication: CLOSTRIDIUM DIFFICILE INFECTION
     Dosage: 4 CAPSULES; 1X/DAY (A.M.)
     Route: 048
     Dates: start: 2013
  2. HYDROXYZINE [Concomitant]
     Active Substance: HYDROXYZINE\HYDROXYZINE HYDROCHLORIDE
  3. PAMOATE [Concomitant]
  4. CALTRATE CALCIUM [Concomitant]
  5. L-LEVOTHYROXINE [Concomitant]
  6. CENTRUM SILVER MULTI-VITAMIN [Concomitant]
  7. MESALAMINE. [Suspect]
     Active Substance: MESALAMINE
     Indication: COLITIS ULCERATIVE
     Dosage: 4 CAPSULES; 1X/DAY (A.M.)
     Route: 048
     Dates: start: 2013
  8. MESALINE [Concomitant]

REACTIONS (3)
  - Immune system disorder [None]
  - Mucous membrane disorder [None]
  - Rhinorrhoea [None]
